FAERS Safety Report 16095351 (Version 7)
Quarter: 2020Q1

REPORT INFORMATION
  Report Type: Other
  Country: CA (occurrence: CA)
  Receive Date: 20190320
  Receipt Date: 20200217
  Transmission Date: 20200409
  Serious: Yes (Other)
  Sender: FDA-Public Use
  Company Number: CA-BECTON DICKINSON-2019BDN00108

PATIENT
  Age: 42 Year
  Sex: Female
  Weight: 81 kg

DRUGS (57)
  1. PERIOGARD [Suspect]
     Active Substance: CHLORHEXIDINE GLUCONATE
  2. LEFLUNOMIDE. [Suspect]
     Active Substance: LEFLUNOMIDE
     Dosage: UNK
     Route: 048
  3. D-ALPHA TOCOPHEROL [Concomitant]
     Active Substance: .ALPHA.-TOCOPHEROL, D-
  4. HYDROXYCHLOROQUINE SULFATE. [Concomitant]
     Active Substance: HYDROXYCHLOROQUINE SULFATE
  5. CIMZIA [Suspect]
     Active Substance: CERTOLIZUMAB PEGOL
     Dosage: 400 MG CYCLICAL
     Route: 058
  6. CAMELLIA SINENSIS/D-ALPHA TOCOPHEROL/FISH OIL/VITAMIN D3 [Concomitant]
  7. GREEN TEA TINCTURE [Concomitant]
     Dosage: UNK
  8. PANTOPRAZOLE [Concomitant]
     Active Substance: PANTOPRAZOLE
  9. PANTOPRAZOLE SODIUM. [Concomitant]
     Active Substance: PANTOPRAZOLE SODIUM
  10. VITAMIN E [Concomitant]
     Active Substance: .ALPHA.-TOCOPHEROL
  11. ACT OXYCODONE CR [Suspect]
     Active Substance: ACETAMINOPHEN\OXYCODONE HYDROCHLORIDE
  12. OXYCODONE [Suspect]
     Active Substance: OXYCODONE
  13. OXYCODONE TEREPHTHALATE [Suspect]
     Active Substance: OXYCODONE TEREPHTHALATE
  14. ARAVA [Concomitant]
     Active Substance: LEFLUNOMIDE
  15. PREDNISONE. [Concomitant]
     Active Substance: PREDNISONE
  16. VITAMIN D3 1000 IU [Concomitant]
  17. ACETAMINOPHEN. [Suspect]
     Active Substance: ACETAMINOPHEN
  18. ACETAMINOPHEN/OXYCODONE HYDROCHLORIDE/OXYCODONE TEREPHTHALATE [Suspect]
     Active Substance: ACETAMINOPHEN\OXYCODONE HYDROCHLORIDE\OXYCODONE TEREPHTHALATE
  19. LEFLUNOMIDE. [Suspect]
     Active Substance: LEFLUNOMIDE
     Dosage: UNK
  20. OXYCODONE HYDROCHLORIDE. [Suspect]
     Active Substance: OXYCODONE HYDROCHLORIDE
  21. OXYCODONE AND ACETAMINOPHEN [Suspect]
     Active Substance: ACETAMINOPHEN\OXYCODONE HYDROCHLORIDE
  22. FISH OIL [Concomitant]
     Active Substance: FISH OIL
  23. PANTOPRAZOLE SODIUM ANHYDROUS [Concomitant]
     Active Substance: PANTOPRAZOLE SODIUM ANHYDROUS
  24. VENTOLIN [Concomitant]
     Active Substance: ALBUTEROL SULFATE
  25. CIMZIA [Suspect]
     Active Substance: CERTOLIZUMAB PEGOL
     Indication: RHEUMATOID ARTHRITIS
     Dosage: 400 MG
     Route: 058
  26. CIMZIA [Suspect]
     Active Substance: CERTOLIZUMAB PEGOL
     Dosage: 400 MG CYCLICAL
  27. CETIRIZINE [Concomitant]
     Active Substance: CETIRIZINE HYDROCHLORIDE
  28. CHOLECALCIFEROL [Concomitant]
     Active Substance: CHOLECALCIFEROL
  29. COENZYME Q10 [Concomitant]
     Active Substance: UBIDECARENONE
  30. DESOGESTREL/ETHINYL ESTRADIOL [Concomitant]
     Active Substance: DESOGESTREL\ETHINYL ESTRADIOL
  31. IBUPROFEN. [Concomitant]
     Active Substance: IBUPROFEN
  32. PANTOLOC [Concomitant]
     Active Substance: PANTOPRAZOLE SODIUM
  33. REACTINE [Concomitant]
  34. VITAMIN D3 [Concomitant]
     Active Substance: CHOLECALCIFEROL
  35. ACTEMRA [Suspect]
     Active Substance: TOCILIZUMAB
  36. METHOTREXATE SODIUM. [Suspect]
     Active Substance: METHOTREXATE SODIUM
  37. ORENCIA [Suspect]
     Active Substance: ABATACEPT
  38. ERGOCALCIFEROL. [Concomitant]
     Active Substance: ERGOCALCIFEROL
  39. VITAMIN D [Concomitant]
     Active Substance: VITAMIN D NOS
  40. ARAVA [Suspect]
     Active Substance: LEFLUNOMIDE
  41. CHOLECALCIFEROL [Suspect]
     Active Substance: CHOLECALCIFEROL
  42. CIMZIA [Suspect]
     Active Substance: CERTOLIZUMAB PEGOL
     Indication: RHEUMATOID ARTHRITIS
     Dosage: 400 MG CYCLICAL
     Route: 058
  43. ENBREL [Suspect]
     Active Substance: ETANERCEPT
     Dosage: UNK
  44. METHOTREXATE SODIUM. [Suspect]
     Active Substance: METHOTREXATE SODIUM
  45. TEA [Concomitant]
     Active Substance: TEA LEAF
  46. HYDROXYCHLOROQUINE [Concomitant]
     Active Substance: HYDROXYCHLOROQUINE
  47. PANTOPAC [Concomitant]
     Active Substance: AMOXICILLIN\CLARITHROMYCIN\PANTOPRAZOLE
  48. TYLENOL [Concomitant]
     Active Substance: ACETAMINOPHEN
  49. VITAMIN C [Concomitant]
     Active Substance: ASCORBIC ACID
  50. ZOPICLONE [Concomitant]
     Active Substance: ZOPICLONE
  51. CHLORHEXIDINE GLUCONATE ORAL RINSE [Suspect]
     Active Substance: CHLORHEXIDINE GLUCONATE
  52. ENBREL [Suspect]
     Active Substance: ETANERCEPT
     Indication: RHEUMATOID ARTHRITIS
     Route: 058
  53. OXYCODONE-ACETAMINOPHEN [Suspect]
     Active Substance: ACETAMINOPHEN\OXYCODONE HYDROCHLORIDE
  54. PERIOGARD ALCOHOL FREE [Suspect]
     Active Substance: CHLORHEXIDINE GLUCONATE
     Route: 002
  55. SIMPONI [Suspect]
     Active Substance: GOLIMUMAB
     Route: 058
  56. CAMELLIA SINENSIS [Concomitant]
     Active Substance: TEA LEAF
  57. PLAQUENIL [Concomitant]
     Active Substance: HYDROXYCHLOROQUINE SULFATE

REACTIONS (23)
  - Lower respiratory tract infection [Unknown]
  - Joint swelling [Unknown]
  - Diarrhoea [Unknown]
  - Incorrect route of product administration [Unknown]
  - Ear pain [Unknown]
  - Abdominal pain upper [Unknown]
  - Asthenia [Unknown]
  - Back pain [Unknown]
  - Contraindicated product administered [Unknown]
  - Off label use [Unknown]
  - Sinusitis [Unknown]
  - Muscle spasticity [Unknown]
  - Respiratory disorder [Unknown]
  - Headache [Unknown]
  - Night sweats [Unknown]
  - Rash [Unknown]
  - Vomiting [Unknown]
  - Insomnia [Unknown]
  - Pruritus [Unknown]
  - Body temperature increased [Unknown]
  - Pain [Unknown]
  - Peripheral swelling [Unknown]
  - Urticaria [Unknown]
